FAERS Safety Report 7979398 (Version 5)
Quarter: 2012Q4

REPORT INFORMATION
  Report Type: Report from Study
  Country: DE (occurrence: JP)
  Receive Date: 20110608
  Receipt Date: 20121127
  Transmission Date: 20130627
  Serious: Yes (Death, Life-Threatening, Hospitalization)
  Sender: FDA-Public Use
  Company Number: JP-BRISTOL-MYERS SQUIBB COMPANY-15809130

PATIENT
  Age: 59 Year
  Sex: Female
  Weight: 42.4 kg

DRUGS (8)
  1. ERBITUX SOLN FOR INF 5MG/ML [Suspect]
     Indication: COLON CANCER
     Dosage: 9May2011:540mg
340mg:16May-16May11 250 mg/m2 2 in 1 M
     Route: 041
     Dates: start: 20110509, end: 20110516
  2. OXALIPLATIN [Suspect]
     Indication: COLON CANCER
     Route: 041
     Dates: start: 20110509, end: 20110509
  3. CALCIUM LEVOFOLINATE [Suspect]
     Indication: COLON CANCER
     Route: 041
     Dates: start: 20110509, end: 20110509
  4. 5-FLUOROURACIL [Suspect]
     Indication: COLON CANCER
     Dosage: 3200mg:09May2011 to ong
     Route: 041
     Dates: start: 20110509, end: 20110509
  5. DECADRON [Concomitant]
     Indication: ANTIEMETIC SUPPORTIVE CARE
     Dosage: Also taken via oral
8mg:10May to 12May2011
     Route: 042
     Dates: start: 20110509, end: 20110512
  6. KYTRIL [Concomitant]
     Indication: ANTIEMETIC SUPPORTIVE CARE
     Route: 042
     Dates: start: 20110509, end: 20110509
  7. NASEA [Concomitant]
     Indication: ANTIEMETIC SUPPORTIVE CARE
     Route: 048
     Dates: start: 20110509, end: 20110509
  8. JUVELA [Concomitant]
     Indication: PROPHYLAXIS
     Route: 062
     Dates: start: 20110509, end: 20110523

REACTIONS (6)
  - Tumour lysis syndrome [Fatal]
  - Hypotension [Not Recovered/Not Resolved]
  - Platelet count decreased [Not Recovered/Not Resolved]
  - Stomatitis [Not Recovered/Not Resolved]
  - Decreased appetite [Not Recovered/Not Resolved]
  - Mucosal inflammation [Not Recovered/Not Resolved]
